FAERS Safety Report 23245762 (Version 2)
Quarter: 2023Q4

REPORT INFORMATION
  Report Type: Spontaneous
  Country: US (occurrence: US)
  Receive Date: 20231130
  Receipt Date: 20231201
  Transmission Date: 20240109
  Serious: No
  Sender: FDA-Public Use
  Company Number: US-009507513-2311USA010290

PATIENT
  Age: 1 Year
  Sex: Female

DRUGS (2)
  1. NOXAFIL [Suspect]
     Active Substance: POSACONAZOLE
     Indication: Antifungal treatment
     Dosage: 100 MILLIGRAM, BID
  2. NOXAFIL [Suspect]
     Active Substance: POSACONAZOLE
     Dosage: 150 MILLIGRAM, BID

REACTIONS (3)
  - Wrong technique in product usage process [Unknown]
  - Product administered to patient of inappropriate age [Unknown]
  - Incorrect route of product administration [Unknown]
